FAERS Safety Report 18382263 (Version 1)
Quarter: 2020Q4

REPORT INFORMATION
  Report Type: Spontaneous
  Country: US (occurrence: US)
  Receive Date: 20201014
  Receipt Date: 20201014
  Transmission Date: 20210114
  Serious: No
  Sender: FDA-Public Use
  Company Number: US-ALLERGAN-2025154US

PATIENT
  Age: 68 Year
  Sex: Female

DRUGS (4)
  1. UBRELVY [Suspect]
     Active Substance: UBROGEPANT
     Indication: MIGRAINE
     Dosage: 50 MG, PRN
     Route: 065
     Dates: start: 202006
  2. PROPRANOLOL [Concomitant]
     Active Substance: PROPRANOLOL HYDROCHLORIDE
     Indication: MIGRAINE PROPHYLAXIS
     Dosage: 20 MG, QHS
  3. PEPCID                             /00305201/ [Suspect]
     Active Substance: ALUMINUM HYDROXIDE\MAGNESIUM CARBONATE
     Indication: GASTROOESOPHAGEAL REFLUX DISEASE
     Dosage: 40 MG, BID
     Route: 048
  4. PEPCID                             /00305201/ [Suspect]
     Active Substance: ALUMINUM HYDROXIDE\MAGNESIUM CARBONATE
     Dosage: UNK

REACTIONS (3)
  - Gastrooesophageal reflux disease [Unknown]
  - Migraine [Recovered/Resolved]
  - Gingival bleeding [Unknown]

NARRATIVE: CASE EVENT DATE: 20200916
